FAERS Safety Report 23230093 (Version 1)
Quarter: 2023Q4

REPORT INFORMATION
  Report Type: Spontaneous
  Country: None (occurrence: CN)
  Receive Date: 20231127
  Receipt Date: 20231127
  Transmission Date: 20240110
  Serious: Yes (Other)
  Sender: FDA-Public Use
  Company Number: CN-B.Braun Medical Inc.-2148710

PATIENT
  Age: 63 Year
  Sex: Male

DRUGS (1)
  1. NUTRILIPID I.V. FAT EMULSION [Suspect]
     Active Substance: SOYBEAN OIL
     Indication: Malnutrition

REACTIONS (4)
  - Hyperhidrosis [None]
  - Dizziness [None]
  - Hypotension [None]
  - Asthenia [None]
